FAERS Safety Report 6635214-3 (Version None)
Quarter: 2010Q1

REPORT INFORMATION
  Report Type: 
  Country: None (occurrence: None)
  Receive Date: 20100315
  Receipt Date: 20100303
  Transmission Date: 20100710
  Serious: Yes (Hospitalization, Other)
  Sender: FDA-Public Use
  Company Number: US-PFIZER INC-2009234380

PATIENT
  Sex: Female
  Weight: 72.574 kg

DRUGS (9)
  1. CHANTIX [Suspect]
     Indication: SMOKING CESSATION THERAPY
     Dosage: 1 MG, 2X/DAY
     Route: 048
  2. EFFEXOR [Concomitant]
     Indication: MAJOR DEPRESSION
     Dosage: 150 MG, 1X/DAY
  3. BUSPAR [Concomitant]
     Dosage: 15 MG, 2X/DAY
  4. ZOVIRAX [Concomitant]
     Indication: HERPES VIRUS INFECTION
     Dosage: 400 MG, 2X/DAY
  5. PRAVACHOL [Concomitant]
     Indication: BLOOD CHOLESTEROL INCREASED
     Dosage: 40 MG, 1X/DAY
  6. REMERON [Concomitant]
     Indication: MAJOR DEPRESSION
     Dosage: 45 MG, 1X/DAY
  7. MULTI-VITAMINS [Concomitant]
     Indication: HYPOVITAMINOSIS
     Dosage: UNK
  8. ALEVE (CAPLET) [Concomitant]
  9. TYLENOL-500 [Concomitant]
     Dosage: UNK

REACTIONS (3)
  - CHEST PAIN [None]
  - CHRONIC OBSTRUCTIVE PULMONARY DISEASE [None]
  - GLOSSODYNIA [None]
